FAERS Safety Report 9468158 (Version 1)
Quarter: 2013Q3

REPORT INFORMATION
  Report Type: Spontaneous
  Country: CH (occurrence: CH)
  Receive Date: 20130821
  Receipt Date: 20130821
  Transmission Date: 20140515
  Serious: Yes (Other)
  Sender: FDA-Public Use
  Company Number: CH-TEVA-425644ISR

PATIENT
  Sex: Male

DRUGS (4)
  1. LAMOTRIN-MEPHA [Suspect]
     Dosage: 250 MILLIGRAM DAILY; 125 MG IN THE MORNING AND IN THE EVENING
     Route: 048
     Dates: start: 201304
  2. DEPAKINE [Concomitant]
     Dosage: DRUG WAS STARTED SHORTLY PRIOR TO THE TIME OF REPORTING (09-AUG-2013)
     Route: 065
     Dates: start: 2013
  3. URBANYL 10 MG TABLETS [Concomitant]
     Dosage: 5 MILLIGRAM DAILY; 1/2 URBANYL IN THE EVENING
     Route: 048
  4. CALCIMAGON D3 [Concomitant]
     Route: 048

REACTIONS (7)
  - Muscular weakness [Unknown]
  - Fall [Not Recovered/Not Resolved]
  - Convulsion [Not Recovered/Not Resolved]
  - Delusion [Unknown]
  - Nausea [Unknown]
  - Mental status changes [Not Recovered/Not Resolved]
  - Condition aggravated [Not Recovered/Not Resolved]
